FAERS Safety Report 5909349-4 (Version None)
Quarter: 2008Q4

REPORT INFORMATION
  Report Type: 
  Country: None (occurrence: None)
  Receive Date: 20081006
  Receipt Date: 20080924
  Transmission Date: 20090506
  Serious: Yes (Other)
  Sender: FDA-Public Use
  Company Number: US-PFIZER INC-2008080794

PATIENT
  Sex: Male
  Weight: 109.09 kg

DRUGS (7)
  1. CAVERJECT [Suspect]
     Indication: ERECTILE DYSFUNCTION
     Dosage: TEXT:20MCG
  2. DIOVAN [Concomitant]
  3. INSULIN [Concomitant]
  4. VYTORIN [Concomitant]
  5. ACETYLSALICYLIC ACID SRT [Concomitant]
  6. CALCIUM [Concomitant]
  7. NEXIUM [Concomitant]

REACTIONS (3)
  - GLYCOSYLATED HAEMOGLOBIN INCREASED [None]
  - LIVER FUNCTION TEST ABNORMAL [None]
  - MEDICATION ERROR [None]
